FAERS Safety Report 20193024 (Version 1)
Quarter: 2021Q4

REPORT INFORMATION
  Report Type: Report from Study
  Country: CA (occurrence: CA)
  Receive Date: 20211216
  Receipt Date: 20211216
  Transmission Date: 20220304
  Serious: Yes (Other)
  Sender: FDA-Public Use
  Company Number: CA-TAKEDA-2021TUS067919

PATIENT
  Age: 31 Year
  Sex: Female
  Weight: 75 kg

DRUGS (1)
  1. VEDOLIZUMAB [Suspect]
     Active Substance: VEDOLIZUMAB
     Indication: Colitis ulcerative
     Dosage: 300 MILLIGRAM
     Route: 042
     Dates: start: 20211015

REACTIONS (6)
  - Colitis ulcerative [Unknown]
  - Cholestasis of pregnancy [Unknown]
  - Pregnancy [Unknown]
  - Fatigue [Unknown]
  - Arthralgia [Unknown]
  - Gallbladder disorder [Unknown]
